FAERS Safety Report 10100352 (Version 3)
Quarter: 2015Q2

REPORT INFORMATION
  Report Type: Spontaneous
  Country: BE (occurrence: BE)
  Receive Date: 20140423
  Receipt Date: 20150406
  Transmission Date: 20150821
  Serious: Yes (Hospitalization)
  Sender: FDA-Public Use
  Company Number: PHHY2014BE048664

PATIENT
  Age: 61 Year
  Sex: Female

DRUGS (9)
  1. SERTRALINE EG [Concomitant]
     Active Substance: SERTRALINE HYDROCHLORIDE
     Indication: PRODUCT USED FOR UNKNOWN INDICATION
     Dosage: 100 MG, UNK
     Route: 065
  2. TEMESTA [Concomitant]
     Active Substance: LORAZEPAM
     Indication: PRODUCT USED FOR UNKNOWN INDICATION
     Dosage: 2.5 MG, UNK
     Route: 065
  3. FENOGAL LIDOSE [Concomitant]
     Indication: PRODUCT USED FOR UNKNOWN INDICATION
     Dosage: 267 MG, UNK
     Route: 065
  4. NOVOMIX [Concomitant]
     Active Substance: INSULIN ASPART
     Indication: PRODUCT USED FOR UNKNOWN INDICATION
     Route: 065
  5. MANIPREX [Interacting]
     Active Substance: LITHIUM CARBONATE
     Indication: BIPOLAR DISORDER
     Dosage: 250 MG, TID
     Route: 065
  6. VOLTAREN [Suspect]
     Active Substance: DICLOFENAC SODIUM
     Indication: PROCEDURAL PAIN
     Dosage: 75 MG, UNK
     Route: 065
  7. ZYPREXA [Concomitant]
     Active Substance: OLANZAPINE
     Indication: PRODUCT USED FOR UNKNOWN INDICATION
     Dosage: 2.5 MG, UNK
     Route: 065
  8. IBUPROFEN. [Interacting]
     Active Substance: IBUPROFEN
     Indication: PROCEDURAL PAIN
     Route: 065
  9. TRAZODONE [Concomitant]
     Active Substance: TRAZODONE HYDROCHLORIDE
     Indication: PRODUCT USED FOR UNKNOWN INDICATION
     Dosage: 100 MG, UNK
     Route: 065

REACTIONS (15)
  - Coma [Unknown]
  - Blood sodium increased [Unknown]
  - Blood osmolarity increased [Unknown]
  - Diabetes mellitus [Unknown]
  - Hyperglycaemia [Recovered/Resolved]
  - Blood urea increased [Unknown]
  - Agitation [Unknown]
  - Hypercalcaemia [Recovered/Resolved]
  - Hypoglycaemia [Recovered/Resolved]
  - Dehydration [Unknown]
  - Loss of consciousness [Unknown]
  - Toxicity to various agents [Recovered/Resolved]
  - Restlessness [Unknown]
  - Acute kidney injury [Recovered/Resolved]
  - Drug interaction [Unknown]
